FAERS Safety Report 4667863-6 (Version None)
Quarter: 2005Q2

REPORT INFORMATION
  Report Type: 
  Country: None (occurrence: None)
  Receive Date: 20050520
  Receipt Date: 20050124
  Transmission Date: 20051028
  Serious: Yes (Hospitalization)
  Sender: FDA-Public Use
  Company Number: FR-ROCHE-393316

PATIENT
  Age: 55 Year
  Sex: Male
  Weight: 85 kg

DRUGS (5)
  1. DACLIZUMAB [Suspect]
     Dosage: AS PER PROTOCOL.
     Route: 042
     Dates: start: 20041202
  2. DACLIZUMAB [Suspect]
     Route: 042
     Dates: start: 20041216
  3. MYCOPHENOLATE MOFETIL [Suspect]
     Route: 048
     Dates: start: 20041202
  4. CYCLOSPORINE [Suspect]
     Route: 048
     Dates: start: 20041205
  5. CORTANCYL [Suspect]
     Route: 048
     Dates: start: 20041203

REACTIONS (6)
  - ACUTE PRERENAL FAILURE [None]
  - CYTOMEGALOVIRUS INFECTION [None]
  - DIARRHOEA [None]
  - POSTRENAL FAILURE [None]
  - PROSTATITIS [None]
  - TRANSPLANT REJECTION [None]
